FAERS Safety Report 9476532 (Version 1)
Quarter: 2013Q3

REPORT INFORMATION
  Report Type: Spontaneous
  Country: JP (occurrence: JP)
  Receive Date: 20130826
  Receipt Date: 20130826
  Transmission Date: 20140515
  Serious: Yes (Other)
  Sender: FDA-Public Use
  Company Number: JP-009507513-1308JPN010351

PATIENT
  Sex: 0

DRUGS (2)
  1. REBETOL [Suspect]
     Dosage: DAILY DOSAGE UNKNOWN
     Route: 048
  2. INTRON A POWDER FOR INJECTION 300 [Suspect]
     Dosage: DAILY DOSAGE UNKNOWN
     Route: 051

REACTIONS (1)
  - Skin necrosis [Not Recovered/Not Resolved]
